FAERS Safety Report 4399301-5 (Version None)
Quarter: 2004Q3

REPORT INFORMATION
  Report Type: 
  Country: None (occurrence: None)
  Receive Date: 20040712
  Receipt Date: 20040624
  Transmission Date: 20050211
  Serious: Yes (Hospitalization)
  Sender: FDA-Public Use
  Company Number: A04200400609

PATIENT
  Age: 38 Year
  Sex: Female

DRUGS (5)
  1. DANAZOL [Suspect]
     Indication: ENDOMETRIOSIS
     Dosage: SEE IMAGE
     Route: 048
     Dates: start: 19860701, end: 19990101
  2. DANAZOL [Suspect]
     Indication: ENDOMETRIOSIS
     Dosage: SEE IMAGE
     Route: 048
     Dates: start: 19990101, end: 20000101
  3. DANAZOL [Suspect]
     Indication: ENDOMETRIOSIS
     Dosage: SEE IMAGE
     Route: 048
     Dates: start: 20000101, end: 20010101
  4. COCP (CONTRACEPTIVE PILL), ETHINYLESTRADIOL + DIONEGEST (ORAL CONTRACE [Concomitant]
  5. ... [Concomitant]

REACTIONS (8)
  - DYSPHONIA [None]
  - ENDOMETRIOMA [None]
  - FOCAL NODULAR HYPERPLASIA [None]
  - HAEMORRHAGE [None]
  - HAIR GROWTH ABNORMAL [None]
  - HEPATIC ADENOMA [None]
  - NECROSIS [None]
  - SCAR [None]
